FAERS Safety Report 8448082-4 (Version None)
Quarter: 2012Q2

REPORT INFORMATION
  Report Type: 
  Country: None (occurrence: None)
  Receive Date: 20120619
  Receipt Date: 20120613
  Transmission Date: 20120825
  Serious: Yes (Hospitalization)
  Sender: FDA-Public Use
  Company Number: GB-SANOFI-AVENTIS-2012SA042447

PATIENT
  Sex: Female

DRUGS (2)
  1. LEVOTHYROXINE SODIUM [Concomitant]
  2. PLAQUENIL [Suspect]
     Route: 048

REACTIONS (6)
  - DYSPNOEA [None]
  - CHEST DISCOMFORT [None]
  - DIARRHOEA [None]
  - FATIGUE [None]
  - NECK PAIN [None]
  - DIZZINESS [None]
